FAERS Safety Report 19698211 (Version 1)
Quarter: 2021Q3

REPORT INFORMATION
  Report Type: Other
  Country: US (occurrence: US)
  Receive Date: 20210813
  Receipt Date: 20210813
  Transmission Date: 20211014
  Serious: Yes (Life-Threatening, Hospitalization)
  Sender: FDA-Public Use
  Company Number: US-ROCHE-2884878

PATIENT
  Age: 68 Year

DRUGS (4)
  1. ACTILYSE [Suspect]
     Active Substance: ALTEPLASE
     Indication: PRODUCT USED FOR UNKNOWN INDICATION
     Dosage: ROUTE: INTRAPLEURAL?A SINGLE DOSE OF 4 MG IPA DILUTED IN 20 ML NORMAL SALINE WAS INSTILLED THROUGH T
     Route: 034
  2. ACTILYSE [Suspect]
     Active Substance: ALTEPLASE
     Dosage: A TOTAL OF 4 MG OF IPA DILUTED IN 20 ML SALINE WAS INSTILLED THROUGH THE IPC WITH A DWELL TIME OF 4
     Route: 065
  3. APIXABAN [Concomitant]
     Active Substance: APIXABAN
     Indication: PRODUCT USED FOR UNKNOWN INDICATION
  4. HEPARIN [Concomitant]
     Active Substance: HEPARIN SODIUM
     Indication: PRODUCT USED FOR UNKNOWN INDICATION
     Route: 042

REACTIONS (4)
  - Haemothorax [Unknown]
  - Pleural effusion [Unknown]
  - Cardiac failure [Unknown]
  - Bacteraemia [Unknown]
